FAERS Safety Report 5285587-1 (Version None)
Quarter: 2007Q1

REPORT INFORMATION
  Report Type: 
  Country: None (occurrence: None)
  Receive Date: 20061229
  Receipt Date: 20060926
  Transmission Date: 20070707
  Serious: Yes (Other)
  Sender: FDA-Public Use
  Company Number: 2006UW18747

PATIENT
  Age: 82 Year
  Sex: Female
  Weight: 61.688 kg

DRUGS (6)
  1. CRESTOR [Suspect]
     Dosage: 10 MG PO
     Route: 048
     Dates: end: 20060922
  2. TOPROL-XL [Concomitant]
  3. DIOVAN [Concomitant]
  4. SYNTHROID [Concomitant]
  5. PLAVIX [Concomitant]
  6. CARDIZEM [Concomitant]

REACTIONS (3)
  - CHILLS [None]
  - PYREXIA [None]
  - RASH [None]
